FAERS Safety Report 20214109 (Version 1)
Quarter: 2021Q4

REPORT INFORMATION
  Report Type: Spontaneous
  Country: CN (occurrence: CN)
  Receive Date: 20211221
  Receipt Date: 20211221
  Transmission Date: 20220303
  Serious: Yes (Hospitalization)
  Sender: FDA-Public Use
  Company Number: CN-SCALL-2021-CN-000416

PATIENT
  Age: 46 Year
  Sex: Male
  Weight: 66.5 kg

DRUGS (5)
  1. RABEPRAZOLE SODIUM [Suspect]
     Active Substance: RABEPRAZOLE SODIUM
     Indication: Duodenal ulcer
     Dosage: 1 DOSAGE FORMS,12 HR
     Route: 048
     Dates: start: 20211115, end: 20211129
  2. FURAZOLIDONE [Suspect]
     Active Substance: FURAZOLIDONE
     Dosage: 1 DOSAGE FORMS,8 HR
     Route: 048
     Dates: start: 20211115, end: 20211129
  3. LEVOFLOXACIN [Suspect]
     Active Substance: LEVOFLOXACIN
     Dosage: 1 DOSAGE FORMS,1 D
     Route: 048
     Dates: start: 20211115, end: 20211129
  4. BISMUTH SUBCITRATE [Concomitant]
     Active Substance: BISMUTH SUBCITRATE
     Dosage: 3 DOSAGE FORMS,1 D
     Route: 048
     Dates: start: 20211115, end: 20211129
  5. REBAMIPIDE [Suspect]
     Active Substance: REBAMIPIDE
     Dosage: 3 DOSAGE FORMS,1 D
     Route: 048
     Dates: start: 20211115, end: 20211129

REACTIONS (4)
  - Eating disorder [Recovering/Resolving]
  - Urticaria [Recovering/Resolving]
  - Rash erythematous [Recovering/Resolving]
  - Pruritus [Recovering/Resolving]

NARRATIVE: CASE EVENT DATE: 20211129
